FAERS Safety Report 25561673 (Version 1)
Quarter: 2025Q3

REPORT INFORMATION
  Report Type: Spontaneous
  Country: EU (occurrence: EU)
  Receive Date: 20250716
  Receipt Date: 20250716
  Transmission Date: 20251020
  Serious: Yes (Hospitalization, Other)
  Sender: BRISTOL-MYERS SQUIBB COMPANY
  Company Number: None

PATIENT
  Age: 61 Year
  Sex: Male

DRUGS (2)
  1. NELVUTAMIG [Suspect]
     Active Substance: NELVUTAMIG
     Indication: Malignant melanoma
     Route: 042
     Dates: start: 20231012, end: 20231102
  2. NIVOLUMAB [Suspect]
     Active Substance: NIVOLUMAB
     Indication: Malignant melanoma
     Route: 042
     Dates: start: 20231012, end: 20231102

REACTIONS (1)
  - Spinal cord injury [Not Recovered/Not Resolved]

NARRATIVE: CASE EVENT DATE: 20231122
